FAERS Safety Report 9783000 (Version 2)
Quarter: 2014Q1

REPORT INFORMATION
  Report Type: Spontaneous
  Country: SE (occurrence: SE)
  Receive Date: 20131226
  Receipt Date: 20140320
  Transmission Date: 20141002
  Serious: Yes (Hospitalization, Other)
  Sender: FDA-Public Use
  Company Number: SE-ELI_LILLY_AND_COMPANY-SE201312007183

PATIENT
  Age: 60 Year
  Sex: Male

DRUGS (8)
  1. HUMALOG LISPRO [Suspect]
     Indication: TYPE 1 DIABETES MELLITUS
     Dosage: 8 U, BID
     Route: 065
  2. HUMALOG LISPRO [Suspect]
     Dosage: 6 U, QD
     Route: 065
  3. HUMALOG LISPRO [Suspect]
     Dosage: 42 U, SINGLE
     Route: 065
  4. LOSARTAN [Concomitant]
  5. ATORVASTATIN [Concomitant]
  6. LANTUS [Concomitant]
     Dosage: 33 U, UNKNOWN
  7. LANTUS [Concomitant]
     Dosage: 16 U, UNKNOWN
  8. VIAGRA [Concomitant]

REACTIONS (3)
  - Blood glucose fluctuation [Unknown]
  - Incorrect dose administered [Unknown]
  - Product label confusion [Unknown]
